FAERS Safety Report 22270526 (Version 1)
Quarter: 2023Q2

REPORT INFORMATION
  Report Type: Spontaneous
  Country: US (occurrence: None)
  Receive Date: 20230430
  Receipt Date: 20230430
  Transmission Date: 20230722
  Serious: Yes (Other)
  Sender: FDA-Public Use
  Company Number: None

PATIENT
  Age: 36 Year
  Sex: Female
  Weight: 85.5 kg

DRUGS (2)
  1. MOUNJARO [Suspect]
     Active Substance: TIRZEPATIDE
     Indication: Weight decreased
     Dosage: OTHER QUANTITY : 1 INJECTION(S);?OTHER FREQUENCY : ONCE WEEKLY;?
     Route: 058
     Dates: start: 20221001, end: 20230407
  2. VITAMINS [Concomitant]
     Active Substance: VITAMINS

REACTIONS (2)
  - Exposure during pregnancy [None]
  - Abortion spontaneous [None]

NARRATIVE: CASE EVENT DATE: 20230428
